FAERS Safety Report 12625097 (Version 1)
Quarter: 2016Q3

REPORT INFORMATION
  Report Type: Spontaneous
  Country: US (occurrence: None)
  Receive Date: 20160804
  Receipt Date: 20160804
  Transmission Date: 20161109
  Serious: No
  Sender: FDA-Public Use
  Company Number: None

PATIENT
  Age: 60 Year
  Sex: Female

DRUGS (3)
  1. SOVALDI [Suspect]
     Active Substance: SOFOSBUVIR
     Indication: SEASONAL ALLERGY
     Dosage: 1 TAB QD ORAL
     Route: 048
     Dates: start: 20160714
  2. RIBAVIRIN. [Concomitant]
     Active Substance: RIBAVIRIN
  3. SOVALDI [Suspect]
     Active Substance: SOFOSBUVIR
     Indication: CHRONIC HEPATITIS C
     Dosage: 1 TAB QD ORAL
     Route: 048
     Dates: start: 20160714

REACTIONS (1)
  - Rash [None]

NARRATIVE: CASE EVENT DATE: 20160803
